FAERS Safety Report 16490614 (Version 1)
Quarter: 2019Q3

REPORT INFORMATION
  Report Type: Spontaneous
  Country: US (occurrence: US)
  Receive Date: 20190627
  Receipt Date: 20190627
  Transmission Date: 20191004
  Serious: Yes (Life-Threatening, Hospitalization)
  Sender: FDA-Public Use
  Company Number: None

PATIENT
  Age: 63 Year
  Sex: Female
  Weight: 63 kg

DRUGS (5)
  1. PROPOFOL. [Concomitant]
     Active Substance: PROPOFOL
     Dates: start: 20190221, end: 20190221
  2. MIDAZOLAM [Concomitant]
     Active Substance: MIDAZOLAM HYDROCHLORIDE
     Dates: start: 20190221, end: 20190223
  3. SUGAMMADEX [Suspect]
     Active Substance: SUGAMMADEX
     Indication: NEUROMUSCULAR BLOCKADE REVERSAL
     Dosage: ?          OTHER FREQUENCY:ONCE;?
     Route: 042
     Dates: start: 20190221, end: 20190221
  4. NICARDIPINE [Concomitant]
     Active Substance: NICARDIPINE
     Dates: start: 20190221, end: 20190221
  5. FENTANYL. [Concomitant]
     Active Substance: FENTANYL
     Dates: start: 20190221, end: 20190223

REACTIONS (5)
  - Labile blood pressure [None]
  - Procedural hypotension [None]
  - Drug hypersensitivity [None]
  - Hypersensitivity [None]
  - Oxygen saturation decreased [None]

NARRATIVE: CASE EVENT DATE: 20190221
